FAERS Safety Report 5640012-3 (Version None)
Quarter: 2008Q1

REPORT INFORMATION
  Report Type: 
  Country: None (occurrence: None)
  Receive Date: 20080227
  Receipt Date: 20080201
  Transmission Date: 20080703
  Serious: No
  Sender: FDA-Public Use
  Company Number: US-BAYER-200813306NA

PATIENT
  Sex: Female

DRUGS (1)
  1. YASMIN [Suspect]
     Route: 048
     Dates: start: 20070401, end: 20080101

REACTIONS (5)
  - INFLUENZA [None]
  - MIGRAINE [None]
  - MUSCLE SPASMS [None]
  - PAIN [None]
  - PYREXIA [None]
